FAERS Safety Report 5783289-6 (Version None)
Quarter: 2008Q2

REPORT INFORMATION
  Report Type: 
  Country: None (occurrence: None)
  Receive Date: 20080605
  Receipt Date: 20080314
  Transmission Date: 20081010
  Serious: No
  Sender: FDA-Public Use
  Company Number: A0715400A

PATIENT
  Age: 58 Year
  Sex: Female

DRUGS (1)
  1. ALLI [Suspect]
     Dates: start: 20080110, end: 20080313

REACTIONS (6)
  - ARTHRALGIA [None]
  - BACK PAIN [None]
  - GROIN PAIN [None]
  - INFLUENZA [None]
  - LOCAL SWELLING [None]
  - PAIN IN EXTREMITY [None]
